FAERS Safety Report 19394715 (Version 3)
Quarter: 2022Q4

REPORT INFORMATION
  Report Type: Other
  Country: CA (occurrence: CA)
  Receive Date: 20210609
  Receipt Date: 20221206
  Transmission Date: 20230113
  Serious: Yes (Hospitalization)
  Sender: FDA-Public Use
  Company Number: CA-002147023-NVSC2020CA350032

PATIENT
  Age: 91 Year
  Sex: Male

DRUGS (1)
  1. LUCENTIS [Suspect]
     Active Substance: RANIBIZUMAB
     Indication: Retinal vein occlusion
     Dosage: 10 MG/ML (PRE-FILLED SYRINGE)
     Route: 050
     Dates: start: 20201009, end: 20201112

REACTIONS (1)
  - Illness [Unknown]
